FAERS Safety Report 26207916 (Version 1)
Quarter: 2025Q4

REPORT INFORMATION
  Report Type: Spontaneous
  Country: US (occurrence: None)
  Receive Date: 20251226
  Receipt Date: 20251226
  Transmission Date: 20260117
  Serious: No
  Sender: FDA-CTU
  Company Number: None

PATIENT
  Age: 66 Year
  Sex: Female

DRUGS (1)
  1. COSMETICS [Suspect]
     Active Substance: COSMETICS
     Indication: Hair colour changes
     Dosage: OTHER FREQUENCY : EVERY 5 WEEKS?OTHER ROUTE : APPLIED TO THE HAIR, SCALP
     Route: 050
     Dates: start: 20251217, end: 20251217

REACTIONS (8)
  - Product expiration date issue [None]
  - Application site pain [None]
  - Alopecia [None]
  - Alopecia [None]
  - Trichorrhexis [None]
  - Product advertising issue [None]
  - Product complaint [None]
  - Product communication issue [None]

NARRATIVE: CASE EVENT DATE: 20251217
